FAERS Safety Report 8699826 (Version 3)
Quarter: 2012Q4

REPORT INFORMATION
  Report Type: 
  Country: US (occurrence: US)
  Receive Date: 20120802
  Receipt Date: 20121019
  Transmission Date: 20130627
  Serious: Yes (Death)
  Sender: FDA-Public Use
  Company Number: US-ASTRAZENECA-2012SE48838

PATIENT
  Age: 81 Year
  Sex: Male
  Weight: 63.5 kg

DRUGS (13)
  1. PULMICORT FLEXHALER [Suspect]
     Indication: CHRONIC OBSTRUCTIVE PULMONARY DISEASE
     Route: 055
     Dates: start: 2007
  2. SPIRIVA [Concomitant]
     Route: 055
  3. ENABLEX [Concomitant]
     Indication: RENAL DISORDER
     Route: 048
  4. MUCINEX [Concomitant]
     Route: 048
  5. OMEGA 3 [Concomitant]
     Route: 048
  6. ASA [Concomitant]
     Route: 048
  7. VITAMIN D [Concomitant]
     Route: 048
  8. STOOL SOFTENER [Concomitant]
     Route: 048
  9. CALTRATE [Concomitant]
     Dosage: DAILY
     Route: 048
  10. LEFLUNOMIDE [Concomitant]
     Route: 048
  11. LASIX [Concomitant]
     Indication: OEDEMA PERIPHERAL
     Dosage: PRN
     Route: 048
  12. POTASSIUM [Concomitant]
     Dosage: PRN
     Route: 048
  13. ALBUTEROL [Concomitant]
     Dosage: PRN
     Route: 055

REACTIONS (2)
  - Death [Fatal]
  - Dementia [Unknown]
